FAERS Safety Report 7950056-4 (Version None)
Quarter: 2011Q4

REPORT INFORMATION
  Report Type: 
  Country: None (occurrence: None)
  Receive Date: 20111130
  Receipt Date: 20111121
  Transmission Date: 20120403
  Serious: Yes (Hospitalization)
  Sender: FDA-Public Use
  Company Number: JP-ROCHE-GNE314696

PATIENT
  Sex: Female

DRUGS (3)
  1. VERTEPORFIN [Suspect]
     Indication: PRODUCT USED FOR UNKNOWN INDICATION
     Route: 042
  2. LEVOFLOXACIN [Concomitant]
     Dates: start: 20090101
  3. RANIBIZUMAB [Suspect]
     Indication: MACULAR DEGENERATION
     Route: 050
     Dates: start: 20091202

REACTIONS (2)
  - RETINAL PIGMENT EPITHELIAL TEAR [None]
  - INAPPROPRIATE SCHEDULE OF DRUG ADMINISTRATION [None]
